FAERS Safety Report 10586160 (Version 3)
Quarter: 2019Q2

REPORT INFORMATION
  Report Type: Spontaneous
  Country: CM (occurrence: CM)
  Receive Date: 20141116
  Receipt Date: 20190607
  Transmission Date: 20190711
  Serious: Yes (Life-Threatening, Hospitalization, Disabling, Other)
  Sender: FDA-Public Use
  Company Number: CM-009507513-1411CMR004414

PATIENT
  Age: 40 Year
  Sex: Female
  Weight: 65 kg

DRUGS (5)
  1. ALBENDAZOLE. [Suspect]
     Active Substance: ALBENDAZOLE
     Indication: FILARIASIS LYMPHATIC
  2. ALBENDAZOLE. [Suspect]
     Active Substance: ALBENDAZOLE
     Indication: ONCHOCERCIASIS
     Dosage: 1 DF, QD
     Dates: start: 20140831, end: 20140831
  3. MECTIZAN [Suspect]
     Active Substance: IVERMECTIN
     Indication: FILARIASIS LYMPHATIC
  4. MECTIZAN [Suspect]
     Active Substance: IVERMECTIN
     Indication: ONCHOCERCIASIS
     Dosage: 4 DF,QD
     Route: 048
     Dates: start: 20140831, end: 20140831
  5. YELLOW FEVER VACCINE NOS [Concomitant]
     Active Substance: YELLOW FEVER VIRUS STRAIN 17D-204 LIVE ANTIGEN
     Dosage: UNK
     Dates: start: 20140831, end: 20140831

REACTIONS (10)
  - Oedema peripheral [Recovered/Resolved]
  - Generalised oedema [Recovered/Resolved]
  - Face oedema [Recovered/Resolved]
  - Pruritus [Recovered/Resolved]
  - Pain [Unknown]
  - Pain in extremity [Recovered/Resolved]
  - Skin exfoliation [Recovered/Resolved]
  - Urticaria [Recovered/Resolved]
  - Loss of personal independence in daily activities [Recovered/Resolved]
  - Stevens-Johnson syndrome [Recovered/Resolved]

NARRATIVE: CASE EVENT DATE: 20140903
